FAERS Safety Report 8119721-2 (Version None)
Quarter: 2012Q1

REPORT INFORMATION
  Report Type: 
  Country: None (occurrence: None)
  Receive Date: 20120207
  Receipt Date: 20120201
  Transmission Date: 20120608
  Serious: Yes (Death, Hospitalization, Other)
  Sender: FDA-Public Use
  Company Number: PHHO2011CA021266

PATIENT
  Sex: Female
  Weight: 109.3 kg

DRUGS (8)
  1. IMATINIB MESYLATE [Suspect]
     Indication: GASTROINTESTINAL STROMAL TUMOUR
     Dosage: 400 MG, QD
     Route: 048
     Dates: start: 20101122, end: 20111229
  2. CITALOPRAM HYDROBROMIDE [Concomitant]
     Indication: DEPRESSION
     Dosage: 40 MG, QD
     Route: 048
     Dates: start: 19801215, end: 20120110
  3. SPIRIVA [Concomitant]
     Indication: CHRONIC OBSTRUCTIVE PULMONARY DISEASE
     Dosage: PUFF OD
     Dates: start: 20110601, end: 20111214
  4. VITAMIN D [Concomitant]
     Dosage: 100 IU OD
     Dates: start: 20110315, end: 20111214
  5. ALBUTEROL SULFATE AUTOHALER [Concomitant]
     Indication: CHRONIC OBSTRUCTIVE PULMONARY DISEASE
     Dosage: 100MG PUFF
     Dates: start: 20070101, end: 20111214
  6. ZOLEDRONIC ACID [Concomitant]
     Indication: HYPERCALCAEMIA
     Dosage: UNK
     Dates: start: 20101116
  7. SYMBICORT [Concomitant]
     Indication: CHRONIC OBSTRUCTIVE PULMONARY DISEASE
     Dosage: PUFF TID
     Dates: start: 20070101, end: 20111214
  8. AVEENO ANTI-ITCH [Concomitant]
     Indication: DRY SKIN
     Dosage: UNK
     Dates: start: 20110115, end: 20111214

REACTIONS (7)
  - PNEUMONIA [None]
  - HYPERCALCAEMIA [None]
  - THROMBOCYTOPENIA [None]
  - DEATH [None]
  - ATRIAL FIBRILLATION [None]
  - CONFUSIONAL STATE [None]
  - DELIRIUM [None]
